FAERS Safety Report 12244633 (Version 2)
Quarter: 2016Q2

REPORT INFORMATION
  Report Type: Spontaneous
  Country: US (occurrence: US)
  Receive Date: 20160407
  Receipt Date: 20160503
  Transmission Date: 20160815
  Serious: Yes (Disabling)
  Sender: FDA-Public Use
  Company Number: US-009507513-1604USA000810

PATIENT
  Age: 59 Year
  Sex: Male

DRUGS (1)
  1. BELSOMRA [Suspect]
     Active Substance: SUVOREXANT
     Indication: INSOMNIA
     Dosage: 15 MG, ONCE
     Route: 048

REACTIONS (3)
  - Psychomotor skills impaired [Recovering/Resolving]
  - Abnormal behaviour [Recovering/Resolving]
  - Amnesia [Recovering/Resolving]
